FAERS Safety Report 9456677 (Version 5)
Quarter: 2014Q1

REPORT INFORMATION
  Report Type: Report from Study
  Country: CA (occurrence: CA)
  Receive Date: 20130813
  Receipt Date: 20140307
  Transmission Date: 20141002
  Serious: Yes (Hospitalization, Other)
  Sender: FDA-Public Use
  Company Number: CA-ROCHE-1260375

PATIENT
  Age: 64 Year
  Sex: Female
  Weight: 62.6 kg

DRUGS (11)
  1. RITUXAN [Suspect]
     Indication: POLYARTERITIS NODOSA
     Dosage: FREQUENCY : DAY 1, DAY 15?DATES OF LAST DOSE : 06/JUN/2011, 27/AUG/2013.
     Route: 042
     Dates: start: 20110518
  2. RITUXAN [Suspect]
     Route: 042
     Dates: start: 20110606
  3. CELLCEPT [Suspect]
     Indication: PRODUCT USED FOR UNKNOWN INDICATION
     Route: 065
  4. DIDROCAL [Suspect]
     Indication: PRODUCT USED FOR UNKNOWN INDICATION
     Route: 065
     Dates: end: 201105
  5. METFORMIN [Concomitant]
     Route: 065
  6. NORVASC [Concomitant]
  7. ATORVASTATIN [Concomitant]
  8. CORTEF [Concomitant]
  9. DIPHENHYDRAMINE HCL [Concomitant]
     Indication: PREMEDICATION
     Route: 048
     Dates: start: 20110518
  10. ACETAMINOPHEN [Concomitant]
     Indication: PREMEDICATION
     Route: 048
     Dates: start: 20110518
  11. METHYLPREDNISOLONE [Concomitant]
     Indication: PREMEDICATION
     Route: 042
     Dates: start: 20110518

REACTIONS (8)
  - Adrenal neoplasm [Unknown]
  - Glaucoma [Not Recovered/Not Resolved]
  - Endocrine disorder [Unknown]
  - Bone density decreased [Not Recovered/Not Resolved]
  - Arteritis [Unknown]
  - Drug ineffective [Unknown]
  - Gastrooesophageal reflux disease [Unknown]
  - Off label use [Unknown]
